FAERS Safety Report 5281803-0 (Version None)
Quarter: 2007Q1

REPORT INFORMATION
  Report Type: 
  Country: None (occurrence: None)
  Receive Date: 20070330
  Receipt Date: 20070322
  Transmission Date: 20070707
  Serious: Yes (Hospitalization)
  Sender: FDA-Public Use
  Company Number: FR-ROCHE-489061

PATIENT
  Age: 44 Year
  Sex: Male

DRUGS (6)
  1. LOXEN LP [Suspect]
     Indication: DRUG USE FOR UNKNOWN INDICATION
     Route: 048
     Dates: start: 20061219, end: 20070124
  2. DEPAKENE [Suspect]
     Indication: DRUG USE FOR UNKNOWN INDICATION
     Route: 048
     Dates: start: 20061219, end: 20070124
  3. TEMESTA [Suspect]
     Indication: DRUG USE FOR UNKNOWN INDICATION
     Dosage: DOSAGE REGIMEN REPORTED AS 1 MG, UID/QD
     Route: 048
     Dates: start: 20061219, end: 20070124
  4. LOVENOX [Suspect]
     Indication: DRUG USE FOR UNKNOWN INDICATION
     Dosage: DAILY DOSE REPORTED AS 1 DOSE FORM, UID/QD
     Route: 058
     Dates: start: 20061219, end: 20070124
  5. NEXIUM [Suspect]
     Indication: DRUG USE FOR UNKNOWN INDICATION
     Route: 048
     Dates: start: 20061219, end: 20070124
  6. TRIATEC [Suspect]
     Indication: DRUG USE FOR UNKNOWN INDICATION
     Dosage: DAILY DOSE AS 5 MG, UID/QD
     Route: 048
     Dates: start: 20070119, end: 20070124

REACTIONS (3)
  - AGRANULOCYTOSIS [None]
  - RHEUMATOID FACTOR INCREASED [None]
  - SPLENOMEGALY [None]
